FAERS Safety Report 11150012 (Version 4)
Quarter: 2018Q3

REPORT INFORMATION
  Report Type: Spontaneous
  Country: FR (occurrence: FR)
  Receive Date: 20150529
  Receipt Date: 20180731
  Transmission Date: 20181010
  Serious: Yes (Hospitalization, Other)
  Sender: FDA-Public Use
  Company Number: FR-GILEAD-2015-0154701

PATIENT
  Age: 35 Year
  Sex: Female

DRUGS (12)
  1. RITONAVIR. [Suspect]
     Active Substance: RITONAVIR
     Indication: HIV INFECTION
     Dosage: 100 MG, QD
     Route: 065
  2. RITONAVIR. [Suspect]
     Active Substance: RITONAVIR
     Dosage: 100 MG,QD
     Route: 065
  3. RITONAVIR. [Suspect]
     Active Substance: RITONAVIR
     Dosage: 100 MG,QD
     Route: 065
  4. RITONAVIR. [Suspect]
     Active Substance: RITONAVIR
     Dosage: 100 MG, QD
     Route: 065
  5. RITONAVIR. [Suspect]
     Active Substance: RITONAVIR
     Dosage: 100 MG, QD
     Route: 065
  6. RITONAVIR. [Suspect]
     Active Substance: RITONAVIR
     Dosage: 100 MG, QD
     Route: 065
  7. RITONAVIR. [Suspect]
     Active Substance: RITONAVIR
     Dosage: 100 MG,QD
     Route: 065
  8. PREVISCAN                          /00261401/ [Concomitant]
     Active Substance: PENTOXIFYLLINE
  9. ATAZANAVIR SULFATE + RITONAVIR [Concomitant]
     Active Substance: ATAZANAVIR SULFATE\RITONAVIR
     Indication: HIV INFECTION
     Dosage: 400 MG, QD
  10. EMTRICITABINE/TENOFOVIR DF [Suspect]
     Active Substance: EMTRICITABINE
     Indication: HIV INFECTION
     Dosage: 1 DF, QD
     Route: 065
  11. RITONAVIR. [Suspect]
     Active Substance: RITONAVIR
     Dosage: 100 MG, QD
     Route: 065
  12. ATAZANAVIR SULFATE. [Interacting]
     Active Substance: ATAZANAVIR SULFATE
     Indication: HIV INFECTION
     Dosage: 300 MG, QD
     Route: 065

REACTIONS (6)
  - Premature delivery [Recovered/Resolved]
  - Premature rupture of membranes [Unknown]
  - Drug resistance [Unknown]
  - Maternal exposure during pregnancy [Recovered/Resolved]
  - Virologic failure [Recovered/Resolved]
  - Drug ineffective [Recovered/Resolved]
